FAERS Safety Report 21657879 (Version 1)
Quarter: 2022Q4

REPORT INFORMATION
  Report Type: Spontaneous
  Country: US (occurrence: None)
  Receive Date: 20221128
  Receipt Date: 20221128
  Transmission Date: 20230113
  Serious: Yes (Hospitalization)
  Sender: FDA-Public Use
  Company Number: None

PATIENT
  Age: 81 Year
  Sex: Male
  Weight: 90.99 kg

DRUGS (10)
  1. IMATINIB [Suspect]
     Active Substance: IMATINIB
     Indication: Malignant melanoma
     Dosage: FREQUENCY : TWICE A DAY;?
     Route: 048
  2. AMLODIPINE [Concomitant]
     Active Substance: AMLODIPINE BESYLATE
  3. FINASTERIDE [Concomitant]
     Active Substance: FINASTERIDE
  4. LOSARTAN [Concomitant]
     Active Substance: LOSARTAN
  5. NITROFURANTOIN [Concomitant]
     Active Substance: NITROFURANTOIN
  6. ONDANSETRON [Concomitant]
     Active Substance: ONDANSETRON
  7. ORPHENADRINE [Concomitant]
     Active Substance: ORPHENADRINE
  8. PREDNISONE [Concomitant]
     Active Substance: PREDNISONE
  9. RUSCH [Concomitant]
  10. TRIAMCINOLONE [Concomitant]
     Active Substance: TRIAMCINOLONE

REACTIONS (1)
  - Hospitalisation [None]
